FAERS Safety Report 22835109 (Version 2)
Quarter: 2024Q3

REPORT INFORMATION
  Report Type: Spontaneous
  Country: CA (occurrence: CA)
  Receive Date: 20230818
  Receipt Date: 20240807
  Transmission Date: 20241017
  Serious: Yes (Hospitalization, Other)
  Sender: AUROBINDO
  Company Number: CA-AUROBINDO-AUR-APL-2023-052773

PATIENT
  Age: 47 Year
  Sex: Female

DRUGS (13)
  1. ATORVASTATIN [Suspect]
     Active Substance: ATORVASTATIN
     Indication: Myocardial infarction
     Dosage: 1 DOSAGE FORM, ONCE A DAY
     Route: 065
  2. CLOPIDOGREL [Suspect]
     Active Substance: CLOPIDOGREL BISULFATE
     Indication: Myocardial infarction
     Dosage: 1 DOSAGE FORM, ONCE A DAY
     Route: 065
  3. ASPIRIN [Suspect]
     Active Substance: ASPIRIN
     Indication: Myocardial infarction
     Dosage: 1 DOSAGE FORM, ONCE A DAY
     Route: 065
  4. TERIFLUNOMIDE [Suspect]
     Active Substance: TERIFLUNOMIDE
     Indication: Multiple sclerosis
     Dosage: 14.0 MILLIGRAM, ONCE A DAY
     Route: 048
  5. COLACE [Concomitant]
     Active Substance: DOCUSATE SODIUM
     Indication: Product used for unknown indication
     Dosage: 200 MILLIGRAM, TWO TIMES A DAY
     Route: 065
  6. FLUCONAZOLE [Concomitant]
     Active Substance: FLUCONAZOLE
     Indication: Antifungal prophylaxis
     Dosage: 150 MILLIGRAM
     Route: 065
  7. MOMETASONE [Concomitant]
     Active Substance: MOMETASONE
     Indication: Product used for unknown indication
     Dosage: UNK
     Route: 065
  8. OXYBUTYNIN CHLORIDE [Concomitant]
     Active Substance: OXYBUTYNIN CHLORIDE
     Indication: Product used for unknown indication
     Dosage: 5 MILLIGRAM, ONCE A DAY
     Route: 065
  9. RANITIDINE [Concomitant]
     Active Substance: RANITIDINE
     Indication: Product used for unknown indication
     Dosage: 450 MILLIGRAM, TWO TIMES A DAY
     Route: 065
  10. ALBUTEROL [Concomitant]
     Active Substance: ALBUTEROL
     Indication: Product used for unknown indication
     Dosage: UNK, AS NECESSARY
     Route: 065
  11. SENNOSIDES [Concomitant]
     Active Substance: SENNOSIDES
     Indication: Product used for unknown indication
     Dosage: 3 DOSAGE FORM, ONCE A DAY
     Route: 065
  12. CITALOPRAM [Concomitant]
     Active Substance: CITALOPRAM\CITALOPRAM HYDROBROMIDE
     Indication: Product used for unknown indication
     Dosage: UNK (SIV-CITALOPRAM)
     Route: 065
  13. VITAMIN D [Concomitant]
     Active Substance: VITAMIN D NOS
     Indication: Product used for unknown indication
     Dosage: 1000 INTERNATIONAL UNIT, ONCE A DAY
     Route: 065

REACTIONS (3)
  - Fungal infection [Recovered/Resolved]
  - Myocardial infarction [Recovered/Resolved]
  - Urinary tract infection [Recovered/Resolved]
